FAERS Safety Report 19515357 (Version 7)
Quarter: 2021Q4

REPORT INFORMATION
  Report Type: Report from Study
  Country: AR (occurrence: AR)
  Receive Date: 20210709
  Receipt Date: 20211215
  Transmission Date: 20220303
  Serious: Yes (Hospitalization)
  Sender: FDA-Public Use
  Company Number: AR-RIGEL PHARMACEUTICALS, INC.-2021FOS000424

PATIENT
  Sex: Female
  Weight: 130 kg

DRUGS (8)
  1. FOSTAMATINIB DISODIUM [Suspect]
     Active Substance: FOSTAMATINIB DISODIUM
     Indication: COVID-19
     Dosage: 150 MG, BID
     Route: 048
     Dates: start: 20210619, end: 20210702
  2. AMIKACIN [Concomitant]
     Active Substance: AMIKACIN
     Indication: Urinary tract infection
     Dosage: UNK, UNK
     Dates: start: 20210621
  3. NITROFURANTOIN [Concomitant]
     Active Substance: NITROFURANTOIN
     Indication: Product used for unknown indication
     Dosage: UNK
     Dates: start: 20210624
  4. HEPARIN SODIUM [Concomitant]
     Active Substance: HEPARIN SODIUM
     Indication: Thrombosis prophylaxis
     Dosage: UNK
     Dates: start: 20210612
  5. DEXAMETHASONE [Concomitant]
     Active Substance: DEXAMETHASONE
     Indication: COVID-19
     Dosage: UNK
     Dates: start: 20210612
  6. LEVOTHYROXINE [Concomitant]
     Active Substance: LEVOTHYROXINE
     Indication: Hypothyroidism
     Dosage: UNK
     Dates: start: 20210612
  7. ENALAPRIL [Concomitant]
     Active Substance: ENALAPRIL
     Indication: Hypertension
     Dosage: UNK
     Dates: start: 202102
  8. SERUM, EQUINE [Concomitant]
     Indication: COVID-19
     Dosage: UNK
     Dates: start: 20210618

REACTIONS (1)
  - Deep vein thrombosis [Recovered/Resolved]

NARRATIVE: CASE EVENT DATE: 20210702
